FAERS Safety Report 14272832 (Version 2)
Quarter: 2018Q1

REPORT INFORMATION
  Report Type: Spontaneous
  Country: US (occurrence: US)
  Receive Date: 20171212
  Receipt Date: 20180118
  Transmission Date: 20180508
  Serious: No
  Sender: FDA-Public Use
  Company Number: US-PFIZER INC-2017528665

PATIENT
  Age: 60 Year
  Sex: Female
  Weight: 49.89 kg

DRUGS (1)
  1. XELJANZ XR [Suspect]
     Active Substance: TOFACITINIB CITRATE
     Indication: RHEUMATOID ARTHRITIS
     Dosage: 11 MG, DAILY
     Route: 048
     Dates: start: 201710

REACTIONS (3)
  - Pollakiuria [Unknown]
  - Musculoskeletal stiffness [Unknown]
  - Urinary incontinence [Unknown]
